FAERS Safety Report 5396495-X (Version None)
Quarter: 2007Q3

REPORT INFORMATION
  Report Type: 
  Country: None (occurrence: None)
  Receive Date: 20070718
  Receipt Date: 20070312
  Transmission Date: 20080115
  Serious: Yes (Hospitalization, Other)
  Sender: FDA-Public Use
  Company Number: 2006146765

PATIENT
  Age: 45 Year
  Sex: Female
  Weight: 104.3 kg

DRUGS (1)
  1. CELEBREX [Suspect]
     Indication: ARTHRITIS
     Dosage: 200 MG (100 MG,2 IN 1 D), ORAL
     Route: 048
     Dates: start: 19950301, end: 20060101

REACTIONS (1)
  - CEREBROVASCULAR ACCIDENT [None]
